FAERS Safety Report 7860463-6 (Version None)
Quarter: 2011Q4

REPORT INFORMATION
  Report Type: 
  Country: None (occurrence: None)
  Receive Date: 20111027
  Receipt Date: 20111013
  Transmission Date: 20120403
  Serious: Yes (Hospitalization, Other)
  Sender: FDA-Public Use
  Company Number: US-BAYER-2011-063367

PATIENT
  Age: 26 Year
  Sex: Female
  Weight: 88.435 kg

DRUGS (8)
  1. XANAX [Concomitant]
     Dosage: 0.5-1.0 MG, TID/PRN
     Route: 048
  2. DROSPIRENONE AND ETHINYL ESTRADIOL [Suspect]
     Indication: PREMENSTRUAL SYNDROME
  3. SPIRONOLACTONE [Concomitant]
     Indication: POLYCYSTIC OVARIES
     Dosage: 100 MG
     Route: 048
     Dates: start: 20090401
  4. DROSPIRENONE AND ETHINYL ESTRADIOL [Suspect]
     Indication: ACNE
     Dosage: UNK
     Dates: start: 20090401, end: 20090801
  5. DROSPIRENONE AND ETHINYL ESTRADIOL [Suspect]
  6. NSAID'S [Concomitant]
     Dosage: UNK UNK, PRN
  7. METFORMIN HCL [Concomitant]
     Indication: POLYCYSTIC OVARIES
     Dosage: 500 MG
     Route: 048
     Dates: start: 20090401
  8. FLUOXETINE HCL [Concomitant]
     Dosage: 20 MG
     Route: 048

REACTIONS (6)
  - PROCEDURAL PAIN [None]
  - ABDOMINAL PAIN [None]
  - INJURY [None]
  - GALLBLADDER DISORDER [None]
  - CHOLECYSTITIS ACUTE [None]
  - DYSPEPSIA [None]
